FAERS Safety Report 8190928-1 (Version None)
Quarter: 2012Q1

REPORT INFORMATION
  Report Type: 
  Country: None (occurrence: None)
  Receive Date: 20120307
  Receipt Date: 20120229
  Transmission Date: 20120608
  Serious: Yes (Hospitalization)
  Sender: FDA-Public Use
  Company Number: US-BAYER-2011-048031

PATIENT
  Age: 38 Year
  Sex: Female
  Weight: 86.621 kg

DRUGS (10)
  1. YAZ [Suspect]
     Indication: PREMENSTRUAL SYNDROME
     Dosage: UNK
     Dates: start: 20090301, end: 20090517
  2. LOVAZA [Concomitant]
     Dosage: UNK UNK, TID
  3. CARB BLOCKER [Concomitant]
     Dosage: UNK UNK, TID
  4. DTPA [Concomitant]
     Dosage: UNK
     Dates: start: 20090508
  5. MULTI-VITAMINS [Concomitant]
     Dosage: UNK UNK, QD
  6. YAZ [Suspect]
  7. LO/OVRAL [Concomitant]
     Dosage: UNK
     Dates: start: 20080501
  8. CYCLOBENZAPRINE [Concomitant]
     Indication: BACK PAIN
  9. AMBIEN [Concomitant]
     Indication: INSOMNIA
  10. TRAZODONE HCL [Concomitant]

REACTIONS (7)
  - CHEST PAIN [None]
  - ANXIETY [None]
  - DYSPNOEA [None]
  - PAIN [None]
  - ANHEDONIA [None]
  - PULMONARY EMBOLISM [None]
  - INJURY [None]
